FAERS Safety Report 8843721 (Version 3)
Quarter: 2012Q4

REPORT INFORMATION
  Report Type: 
  Country: JP (occurrence: JP)
  Receive Date: 20121016
  Receipt Date: 20121109
  Transmission Date: 20130627
  Serious: No
  Sender: FDA-Public Use
  Company Number: JP-009507513-1210JPN003409

PATIENT
  Age: 23 Year
  Sex: Male
  Weight: 80 kg

DRUGS (6)
  1. SINGULAIR TABLETS 10MG [Suspect]
     Indication: ASTHMA
     Dosage: 10 mg, qd
     Route: 048
     Dates: start: 20120928, end: 20121003
  2. SINGULAIR TABLETS 10MG [Suspect]
     Indication: RHINITIS ALLERGIC
  3. ALLELOCK OD [Suspect]
     Indication: RHINITIS ALLERGIC
     Dosage: 5 mg, qd
     Route: 048
     Dates: start: 20120928, end: 20121003
  4. ALLEGRA [Suspect]
     Indication: RHINITIS ALLERGIC
     Dosage: 60 mg, qd
     Route: 048
     Dates: start: 20120928, end: 20121003
  5. ADOAIR [Concomitant]
     Indication: ASTHMA
     Dosage: Dose unknown during day
     Route: 055
     Dates: start: 20120928
  6. ALLERMIST [Concomitant]
     Indication: RHINITIS ALLERGIC
     Dosage: UNK, qd
     Route: 050
     Dates: start: 20120928

REACTIONS (1)
  - Generalised oedema [Recovered/Resolved]
